FAERS Safety Report 23803324 (Version 1)
Quarter: 2024Q2

REPORT INFORMATION
  Report Type: Spontaneous
  Country: US (occurrence: None)
  Receive Date: 20240430
  Receipt Date: 20240430
  Transmission Date: 20240716
  Serious: Yes (Hospitalization)
  Sender: FDA-Public Use
  Company Number: None

PATIENT
  Age: 49 Year
  Sex: Female
  Weight: 71.55 kg

DRUGS (1)
  1. MOUNJARO [Suspect]
     Active Substance: TIRZEPATIDE
     Dosage: OTHER FREQUENCY : 1 TIME PER WEEK;?
     Route: 030
     Dates: start: 20240418, end: 20240427

REACTIONS (6)
  - Hypersensitivity [None]
  - Vomiting [None]
  - Diarrhoea [None]
  - Syncope [None]
  - Head injury [None]
  - Dehydration [None]

NARRATIVE: CASE EVENT DATE: 20240427
